FAERS Safety Report 5008546-2 (Version None)
Quarter: 2006Q2

REPORT INFORMATION
  Report Type: 
  Country: None (occurrence: None)
  Receive Date: 20060518
  Receipt Date: 20060511
  Transmission Date: 20061013
  Serious: Yes (Other)
  Sender: FDA-Public Use
  Company Number: 200610437BFR

PATIENT
  Age: 59 Year
  Sex: Male

DRUGS (3)
  1. CIPROFLOXACIN HCL [Suspect]
     Indication: EPIDIDYMITIS
     Dates: start: 20060301
  2. AUGMENTIN '125' [Concomitant]
  3. CEFTRIAXONE [Concomitant]

REACTIONS (2)
  - PAPILLOEDEMA [None]
  - PHOTOPSIA [None]
